FAERS Safety Report 9216798 (Version 3)
Quarter: 2013Q3

REPORT INFORMATION
  Report Type: Spontaneous
  Country: US (occurrence: US)
  Receive Date: 20130408
  Receipt Date: 20130722
  Transmission Date: 20140515
  Serious: No
  Sender: FDA-Public Use
  Company Number: US-009507513-1304USA002919

PATIENT
  Age: 22 Year
  Sex: Female

DRUGS (1)
  1. NEXPLANON [Suspect]
     Indication: CONTRACEPTION
     Dosage: 1 STANDARD PACKAGE OF PF APPLICATION OF 1, 1 ROD
     Route: 059
     Dates: start: 20130325

REACTIONS (3)
  - Device expulsion [Unknown]
  - Device dislocation [Unknown]
  - No adverse event [Unknown]
